FAERS Safety Report 6723866-9 (Version None)
Quarter: 2010Q2

REPORT INFORMATION
  Report Type: 
  Country: None (occurrence: None)
  Receive Date: 20100511
  Receipt Date: 20100426
  Transmission Date: 20101027
  Serious: Yes (Hospitalization)
  Sender: FDA-Public Use
  Company Number: 10-163

PATIENT
  Age: 24 Month
  Sex: Male

DRUGS (2)
  1. IBUPROFEN CAPSULES, UNK, UNK [Suspect]
     Indication: ACCIDENTAL OVERDOSE
     Dosage: ORAL
     Route: 048
     Dates: end: 20100421
  2. LANSOPRAZOLE [Concomitant]

REACTIONS (10)
  - ABDOMINAL WALL DISORDER [None]
  - DEHYDRATION [None]
  - FOOD INTOLERANCE [None]
  - GASTROINTESTINAL OEDEMA [None]
  - HAEMATEMESIS [None]
  - HAEMATOCHEZIA [None]
  - HYPOPHAGIA [None]
  - PYLORIC STENOSIS [None]
  - VOMITING [None]
  - WEIGHT DECREASED [None]
